FAERS Safety Report 18730447 (Version 1)
Quarter: 2021Q1

REPORT INFORMATION
  Report Type: Spontaneous
  Country: PL (occurrence: PL)
  Receive Date: 20210112
  Receipt Date: 20210112
  Transmission Date: 20210419
  Serious: Yes (Other)
  Sender: FDA-Public Use
  Company Number: PL-PFIZER INC-2021009148

PATIENT
  Age: 61 Year
  Sex: Female
  Weight: 71 kg

DRUGS (1)
  1. SUTENT [Suspect]
     Active Substance: SUNITINIB MALATE
     Indication: RENAL CELL CARCINOMA
     Dosage: 50 MG, 1X/DAY
     Route: 048

REACTIONS (17)
  - Thyroid disorder [Unknown]
  - Hyperglycaemia [Unknown]
  - Feeling cold [Unknown]
  - Leukocytosis [Unknown]
  - Fatigue [Unknown]
  - Oedema peripheral [Unknown]
  - Lymphocytosis [Unknown]
  - Dyspepsia [Unknown]
  - Palmar-plantar erythrodysaesthesia syndrome [Unknown]
  - Weight decreased [Unknown]
  - Oral discomfort [Unknown]
  - Blood pressure increased [Unknown]
  - Aspartate aminotransferase increased [Unknown]
  - Anaemia [Unknown]
  - Chronic kidney disease [Unknown]
  - Thrombocytosis [Unknown]
  - Diarrhoea [Unknown]
